FAERS Safety Report 5163521-2 (Version None)
Quarter: 2006Q4

REPORT INFORMATION
  Report Type: 
  Country: None (occurrence: None)
  Receive Date: 20061124
  Receipt Date: 20061113
  Transmission Date: 20070319
  Serious: Yes (Death, Life-Threatening, Hospitalization)
  Sender: FDA-Public Use
  Company Number: 2006140080

PATIENT
  Age: 45 Year
  Sex: Male
  Weight: 136.0791 kg

DRUGS (9)
  1. NORVASC [Suspect]
     Indication: HYPERTENSION
     Dosage: 5 MG (DAILY)
  2. DANTROLENE SODIUM [Suspect]
     Indication: NEUROLEPTIC MALIGNANT SYNDROME
     Dosage: (116 MG), INTRAVENOUS
     Route: 042
     Dates: start: 20060713
  3. CLOZAPINE [Suspect]
     Indication: SCHIZOAFFECTIVE DISORDER
     Dosage: (400 MG)
     Dates: start: 20060622
  4. GLUCOPHAGE [Concomitant]
  5. ATENOLOL [Concomitant]
  6. CLONAZEPAM [Concomitant]
  7. GLIPIZIDE [Concomitant]
  8. BROMOCRIPTINE MESYLATE [Concomitant]
  9. INSULIN                (INSULIN) [Concomitant]

REACTIONS (18)
  - AGITATION [None]
  - BLOOD CREATINE PHOSPHOKINASE INCREASED [None]
  - CARDIO-RESPIRATORY ARREST [None]
  - CONFUSIONAL STATE [None]
  - EJECTION FRACTION DECREASED [None]
  - ELECTROCARDIOGRAM ST-T SEGMENT ABNORMAL [None]
  - ILL-DEFINED DISORDER [None]
  - LETHARGY [None]
  - PARALYSIS [None]
  - PERIPHERAL COLDNESS [None]
  - PSYCHOTIC DISORDER [None]
  - PYREXIA [None]
  - RESPIRATORY DEPRESSION [None]
  - RESPIRATORY RATE DECREASED [None]
  - SKIN DISCOLOURATION [None]
  - TACHYCARDIA [None]
  - VASODILATATION [None]
  - VENTRICULAR FIBRILLATION [None]
